FAERS Safety Report 25613668 (Version 1)
Quarter: 2025Q3

REPORT INFORMATION
  Report Type: Spontaneous
  Country: US (occurrence: None)
  Receive Date: 20250728
  Receipt Date: 20250728
  Transmission Date: 20251021
  Serious: Yes (Hospitalization)
  Sender: FDA-CTU
  Company Number: None

PATIENT
  Age: 34 Year
  Sex: Female
  Weight: 100 kg

DRUGS (2)
  1. MIFEPRISTONE [Suspect]
     Active Substance: MIFEPRISTONE
  2. MISOPROSTOL [Concomitant]
     Active Substance: MISOPROSTOL

REACTIONS (2)
  - Pancreatitis acute [None]
  - Tachycardia [None]

NARRATIVE: CASE EVENT DATE: 20250721
